FAERS Safety Report 26011109 (Version 1)
Quarter: 2025Q4

REPORT INFORMATION
  Report Type: Spontaneous
  Country: EU (occurrence: EU)
  Receive Date: 20251107
  Receipt Date: 20251107
  Transmission Date: 20260118
  Serious: Yes (Other)
  Sender: MYLAN
  Company Number: EU-MYLANLABS-2025M1093977

PATIENT
  Age: 15 Year
  Sex: Female

DRUGS (84)
  1. DOXORUBICIN [Suspect]
     Active Substance: DOXORUBICIN
     Indication: Hodgkin^s disease
     Dosage: UNK, CYCLE (PART OF OEPA; TWO CYCLES)
     Dates: start: 2011, end: 2021
  2. DOXORUBICIN [Suspect]
     Active Substance: DOXORUBICIN
     Dosage: UNK, CYCLE (PART OF OEPA; TWO CYCLES)
     Dates: start: 2011, end: 2021
  3. DOXORUBICIN [Suspect]
     Active Substance: DOXORUBICIN
     Dosage: UNK, CYCLE (PART OF OEPA; TWO CYCLES)
     Route: 065
     Dates: start: 2011, end: 2021
  4. DOXORUBICIN [Suspect]
     Active Substance: DOXORUBICIN
     Dosage: UNK, CYCLE (PART OF OEPA; TWO CYCLES)
     Route: 065
     Dates: start: 2011, end: 2021
  5. DOXORUBICIN [Suspect]
     Active Substance: DOXORUBICIN
     Dosage: UNK, CYCLE (PART OF DECOPDAC, 3 CYCLE)
     Dates: start: 2021, end: 2021
  6. DOXORUBICIN [Suspect]
     Active Substance: DOXORUBICIN
     Dosage: UNK, CYCLE (PART OF DECOPDAC, 3 CYCLE)
     Dates: start: 2021, end: 2021
  7. DOXORUBICIN [Suspect]
     Active Substance: DOXORUBICIN
     Dosage: UNK, CYCLE (PART OF DECOPDAC, 3 CYCLE)
     Route: 065
     Dates: start: 2021, end: 2021
  8. DOXORUBICIN [Suspect]
     Active Substance: DOXORUBICIN
     Dosage: UNK, CYCLE (PART OF DECOPDAC, 3 CYCLE)
     Route: 065
     Dates: start: 2021, end: 2021
  9. VINCRISTINE [Suspect]
     Active Substance: VINCRISTINE
     Indication: Hodgkin^s disease
     Dosage: UNK UNK, CYCLE (PART OF OEPA; TWO CYCLES)
     Dates: start: 2011, end: 2021
  10. VINCRISTINE [Suspect]
     Active Substance: VINCRISTINE
     Dosage: UNK UNK, CYCLE (PART OF OEPA; TWO CYCLES)
     Dates: start: 2011, end: 2021
  11. VINCRISTINE [Suspect]
     Active Substance: VINCRISTINE
     Dosage: UNK UNK, CYCLE (PART OF OEPA; TWO CYCLES)
     Route: 065
     Dates: start: 2011, end: 2021
  12. VINCRISTINE [Suspect]
     Active Substance: VINCRISTINE
     Dosage: UNK UNK, CYCLE (PART OF OEPA; TWO CYCLES)
     Route: 065
     Dates: start: 2011, end: 2021
  13. VINCRISTINE [Suspect]
     Active Substance: VINCRISTINE
     Dosage: UNK UNK, CYCLE (PART OF COPDAC REGIMEN, ONE CYCLE)
     Dates: start: 2021, end: 2021
  14. VINCRISTINE [Suspect]
     Active Substance: VINCRISTINE
     Dosage: UNK UNK, CYCLE (PART OF COPDAC REGIMEN, ONE CYCLE)
     Dates: start: 2021, end: 2021
  15. VINCRISTINE [Suspect]
     Active Substance: VINCRISTINE
     Dosage: UNK UNK, CYCLE (PART OF COPDAC REGIMEN, ONE CYCLE)
     Route: 065
     Dates: start: 2021, end: 2021
  16. VINCRISTINE [Suspect]
     Active Substance: VINCRISTINE
     Dosage: UNK UNK, CYCLE (PART OF COPDAC REGIMEN, ONE CYCLE)
     Route: 065
     Dates: start: 2021, end: 2021
  17. VINCRISTINE [Suspect]
     Active Substance: VINCRISTINE
     Dosage: 11 MILLIGRAM/SQ. METER, CYCLE (PART OF DECOPDAC, 3 CYCLE)
     Dates: start: 2021, end: 2021
  18. VINCRISTINE [Suspect]
     Active Substance: VINCRISTINE
     Dosage: 11 MILLIGRAM/SQ. METER, CYCLE (PART OF DECOPDAC, 3 CYCLE)
     Route: 065
     Dates: start: 2021, end: 2021
  19. VINCRISTINE [Suspect]
     Active Substance: VINCRISTINE
     Dosage: 11 MILLIGRAM/SQ. METER, CYCLE (PART OF DECOPDAC, 3 CYCLE)
     Dates: start: 2021, end: 2021
  20. VINCRISTINE [Suspect]
     Active Substance: VINCRISTINE
     Dosage: 11 MILLIGRAM/SQ. METER, CYCLE (PART OF DECOPDAC, 3 CYCLE)
     Route: 065
     Dates: start: 2021, end: 2021
  21. ETOPOSIDE [Suspect]
     Active Substance: ETOPOSIDE
     Indication: Hodgkin^s disease
     Dosage: UNK UNK, CYCLE (PART OF OEPA; TWO CYCLES)
     Dates: start: 2011, end: 2021
  22. ETOPOSIDE [Suspect]
     Active Substance: ETOPOSIDE
     Dosage: UNK UNK, CYCLE (PART OF OEPA; TWO CYCLES)
     Dates: start: 2011, end: 2021
  23. ETOPOSIDE [Suspect]
     Active Substance: ETOPOSIDE
     Dosage: UNK UNK, CYCLE (PART OF OEPA; TWO CYCLES)
     Route: 065
     Dates: start: 2011, end: 2021
  24. ETOPOSIDE [Suspect]
     Active Substance: ETOPOSIDE
     Dosage: UNK UNK, CYCLE (PART OF OEPA; TWO CYCLES)
     Route: 065
     Dates: start: 2011, end: 2021
  25. ETOPOSIDE [Suspect]
     Active Substance: ETOPOSIDE
     Dosage: UNK UNK, CYCLE (PART OF DECOPDAC, 3 CYCLE)
     Dates: start: 2021, end: 2021
  26. ETOPOSIDE [Suspect]
     Active Substance: ETOPOSIDE
     Dosage: UNK UNK, CYCLE (PART OF DECOPDAC, 3 CYCLE)
     Dates: start: 2021, end: 2021
  27. ETOPOSIDE [Suspect]
     Active Substance: ETOPOSIDE
     Dosage: UNK UNK, CYCLE (PART OF DECOPDAC, 3 CYCLE)
     Route: 065
     Dates: start: 2021, end: 2021
  28. ETOPOSIDE [Suspect]
     Active Substance: ETOPOSIDE
     Dosage: UNK UNK, CYCLE (PART OF DECOPDAC, 3 CYCLE)
     Route: 065
     Dates: start: 2021, end: 2021
  29. ETOPOSIDE [Suspect]
     Active Substance: ETOPOSIDE
     Dosage: UNK UNK, CYCLE (PART OF BEAM REGIMEN, HIGH DOSE-CHEMOTHERAPY)
     Dates: start: 202203
  30. ETOPOSIDE [Suspect]
     Active Substance: ETOPOSIDE
     Dosage: UNK UNK, CYCLE (PART OF BEAM REGIMEN, HIGH DOSE-CHEMOTHERAPY)
     Route: 065
     Dates: start: 202203
  31. ETOPOSIDE [Suspect]
     Active Substance: ETOPOSIDE
     Dosage: UNK UNK, CYCLE (PART OF BEAM REGIMEN, HIGH DOSE-CHEMOTHERAPY)
     Dates: start: 202203
  32. ETOPOSIDE [Suspect]
     Active Substance: ETOPOSIDE
     Dosage: UNK UNK, CYCLE (PART OF BEAM REGIMEN, HIGH DOSE-CHEMOTHERAPY)
     Route: 065
     Dates: start: 202203
  33. PREDNISONE [Suspect]
     Active Substance: PREDNISONE
     Indication: Hodgkin^s disease
     Dosage: UNK UNK, CYCLE (PART OF OEPA; TWO CYCLES)
     Dates: start: 2011, end: 2021
  34. PREDNISONE [Suspect]
     Active Substance: PREDNISONE
     Dosage: UNK UNK, CYCLE (PART OF OEPA; TWO CYCLES)
     Dates: start: 2011, end: 2021
  35. PREDNISONE [Suspect]
     Active Substance: PREDNISONE
     Dosage: UNK UNK, CYCLE (PART OF OEPA; TWO CYCLES)
     Route: 065
     Dates: start: 2011, end: 2021
  36. PREDNISONE [Suspect]
     Active Substance: PREDNISONE
     Dosage: UNK UNK, CYCLE (PART OF OEPA; TWO CYCLES)
     Route: 065
     Dates: start: 2011, end: 2021
  37. PREDNISONE [Suspect]
     Active Substance: PREDNISONE
     Dosage: UNK UNK, CYCLE (PART OF COPDAC REGIMEN, ONE CYCLE)
     Dates: start: 2021, end: 2021
  38. PREDNISONE [Suspect]
     Active Substance: PREDNISONE
     Dosage: UNK UNK, CYCLE (PART OF COPDAC REGIMEN, ONE CYCLE)
     Dates: start: 2021, end: 2021
  39. PREDNISONE [Suspect]
     Active Substance: PREDNISONE
     Dosage: UNK UNK, CYCLE (PART OF COPDAC REGIMEN, ONE CYCLE)
     Route: 065
     Dates: start: 2021, end: 2021
  40. PREDNISONE [Suspect]
     Active Substance: PREDNISONE
     Dosage: UNK UNK, CYCLE (PART OF COPDAC REGIMEN, ONE CYCLE)
     Route: 065
     Dates: start: 2021, end: 2021
  41. PREDNISONE [Suspect]
     Active Substance: PREDNISONE
     Dosage: UNK UNK, CYCLE (PART OF DECOPDAC, 3 CYCLE)
     Dates: start: 2021, end: 2021
  42. PREDNISONE [Suspect]
     Active Substance: PREDNISONE
     Dosage: UNK UNK, CYCLE (PART OF DECOPDAC, 3 CYCLE)
     Route: 065
     Dates: start: 2021, end: 2021
  43. PREDNISONE [Suspect]
     Active Substance: PREDNISONE
     Dosage: UNK UNK, CYCLE (PART OF DECOPDAC, 3 CYCLE)
     Dates: start: 2021, end: 2021
  44. PREDNISONE [Suspect]
     Active Substance: PREDNISONE
     Dosage: UNK UNK, CYCLE (PART OF DECOPDAC, 3 CYCLE)
     Route: 065
     Dates: start: 2021, end: 2021
  45. CYCLOPHOSPHAMIDE [Suspect]
     Active Substance: CYCLOPHOSPHAMIDE
     Indication: Hodgkin^s disease
     Dosage: UNK UNK, CYCLE (PART OF COPDAC REGIMEN, ONE CYCLE)
     Dates: start: 2021, end: 2021
  46. CYCLOPHOSPHAMIDE [Suspect]
     Active Substance: CYCLOPHOSPHAMIDE
     Dosage: UNK UNK, CYCLE (PART OF COPDAC REGIMEN, ONE CYCLE)
     Dates: start: 2021, end: 2021
  47. CYCLOPHOSPHAMIDE [Suspect]
     Active Substance: CYCLOPHOSPHAMIDE
     Dosage: UNK UNK, CYCLE (PART OF COPDAC REGIMEN, ONE CYCLE)
     Route: 065
     Dates: start: 2021, end: 2021
  48. CYCLOPHOSPHAMIDE [Suspect]
     Active Substance: CYCLOPHOSPHAMIDE
     Dosage: UNK UNK, CYCLE (PART OF COPDAC REGIMEN, ONE CYCLE)
     Route: 065
     Dates: start: 2021, end: 2021
  49. CYCLOPHOSPHAMIDE [Suspect]
     Active Substance: CYCLOPHOSPHAMIDE
     Dosage: UNK UNK, CYCLE (PART OF DECOPDAC, 3 CYCLE)
     Dates: start: 2021, end: 2021
  50. CYCLOPHOSPHAMIDE [Suspect]
     Active Substance: CYCLOPHOSPHAMIDE
     Dosage: UNK UNK, CYCLE (PART OF DECOPDAC, 3 CYCLE)
     Dates: start: 2021, end: 2021
  51. CYCLOPHOSPHAMIDE [Suspect]
     Active Substance: CYCLOPHOSPHAMIDE
     Dosage: UNK UNK, CYCLE (PART OF DECOPDAC, 3 CYCLE)
     Route: 065
     Dates: start: 2021, end: 2021
  52. CYCLOPHOSPHAMIDE [Suspect]
     Active Substance: CYCLOPHOSPHAMIDE
     Dosage: UNK UNK, CYCLE (PART OF DECOPDAC, 3 CYCLE)
     Route: 065
     Dates: start: 2021, end: 2021
  53. DACARBAZINE [Suspect]
     Active Substance: DACARBAZINE
     Indication: Hodgkin^s disease
     Dosage: UNK UNK, CYCLE (PART OF COPDAC REGIMEN, ONE CYCLE)
     Dates: start: 2021, end: 2021
  54. DACARBAZINE [Suspect]
     Active Substance: DACARBAZINE
     Dosage: UNK UNK, CYCLE (PART OF COPDAC REGIMEN, ONE CYCLE)
     Route: 065
     Dates: start: 2021, end: 2021
  55. DACARBAZINE [Suspect]
     Active Substance: DACARBAZINE
     Dosage: UNK UNK, CYCLE (PART OF COPDAC REGIMEN, ONE CYCLE)
     Route: 065
     Dates: start: 2021, end: 2021
  56. DACARBAZINE [Suspect]
     Active Substance: DACARBAZINE
     Dosage: UNK UNK, CYCLE (PART OF COPDAC REGIMEN, ONE CYCLE)
     Dates: start: 2021, end: 2021
  57. IFOSFAMIDE [Suspect]
     Active Substance: IFOSFAMIDE
     Indication: Hodgkin^s disease
     Dosage: UNK UNK, CYCLE (PART OF IVEG REGIMEN, 4 CYCLES)
     Dates: start: 2021, end: 2022
  58. IFOSFAMIDE [Suspect]
     Active Substance: IFOSFAMIDE
     Dosage: UNK UNK, CYCLE (PART OF IVEG REGIMEN, 4 CYCLES)
     Route: 065
     Dates: start: 2021, end: 2022
  59. IFOSFAMIDE [Suspect]
     Active Substance: IFOSFAMIDE
     Dosage: UNK UNK, CYCLE (PART OF IVEG REGIMEN, 4 CYCLES)
     Route: 065
     Dates: start: 2021, end: 2022
  60. IFOSFAMIDE [Suspect]
     Active Substance: IFOSFAMIDE
     Dosage: UNK UNK, CYCLE (PART OF IVEG REGIMEN, 4 CYCLES)
     Dates: start: 2021, end: 2022
  61. GEMCITABINE [Suspect]
     Active Substance: GEMCITABINE
     Indication: Hodgkin^s disease
     Dosage: UNK UNK, CYCLE (PART OF IVEG REGIMEN, 4 CYCLES)
     Dates: start: 2021, end: 2022
  62. GEMCITABINE [Suspect]
     Active Substance: GEMCITABINE
     Dosage: UNK UNK, CYCLE (PART OF IVEG REGIMEN, 4 CYCLES)
     Route: 065
     Dates: start: 2021, end: 2022
  63. GEMCITABINE [Suspect]
     Active Substance: GEMCITABINE
     Dosage: UNK UNK, CYCLE (PART OF IVEG REGIMEN, 4 CYCLES)
     Route: 065
     Dates: start: 2021, end: 2022
  64. GEMCITABINE [Suspect]
     Active Substance: GEMCITABINE
     Dosage: UNK UNK, CYCLE (PART OF IVEG REGIMEN, 4 CYCLES)
     Dates: start: 2021, end: 2022
  65. VINORELBINE [Suspect]
     Active Substance: VINORELBINE TARTRATE
     Indication: Hodgkin^s disease
     Dosage: 80 MILLIGRAM/SQ. METER, CYCLE (PART OF IVEG REGIMEN, 4 CYCLES)
     Dates: start: 2021, end: 2022
  66. VINORELBINE [Suspect]
     Active Substance: VINORELBINE TARTRATE
     Dosage: 80 MILLIGRAM/SQ. METER, CYCLE (PART OF IVEG REGIMEN, 4 CYCLES)
     Route: 065
     Dates: start: 2021, end: 2022
  67. VINORELBINE [Suspect]
     Active Substance: VINORELBINE TARTRATE
     Dosage: 80 MILLIGRAM/SQ. METER, CYCLE (PART OF IVEG REGIMEN, 4 CYCLES)
     Route: 065
     Dates: start: 2021, end: 2022
  68. VINORELBINE [Suspect]
     Active Substance: VINORELBINE TARTRATE
     Dosage: 80 MILLIGRAM/SQ. METER, CYCLE (PART OF IVEG REGIMEN, 4 CYCLES)
     Dates: start: 2021, end: 2022
  69. CARMUSTINE [Suspect]
     Active Substance: CARMUSTINE
     Indication: Hodgkin^s disease
     Dosage: UNK (PART OF BEAM REGIMEN, HIGH DOSE-CHEMOTHERAPY)
  70. CARMUSTINE [Suspect]
     Active Substance: CARMUSTINE
     Dosage: UNK (PART OF BEAM REGIMEN, HIGH DOSE-CHEMOTHERAPY)
     Route: 065
  71. CARMUSTINE [Suspect]
     Active Substance: CARMUSTINE
     Dosage: UNK (PART OF BEAM REGIMEN, HIGH DOSE-CHEMOTHERAPY)
     Route: 065
  72. CARMUSTINE [Suspect]
     Active Substance: CARMUSTINE
     Dosage: UNK (PART OF BEAM REGIMEN, HIGH DOSE-CHEMOTHERAPY)
  73. CYTARABINE [Suspect]
     Active Substance: CYTARABINE
     Indication: Hodgkin^s disease
     Dosage: PART OF BEAM REGIMEN, HIGH DOSE-CHEMOTHERAPY
  74. CYTARABINE [Suspect]
     Active Substance: CYTARABINE
     Dosage: PART OF BEAM REGIMEN, HIGH DOSE-CHEMOTHERAPY
     Route: 065
  75. CYTARABINE [Suspect]
     Active Substance: CYTARABINE
     Dosage: PART OF BEAM REGIMEN, HIGH DOSE-CHEMOTHERAPY
     Route: 065
  76. CYTARABINE [Suspect]
     Active Substance: CYTARABINE
     Dosage: PART OF BEAM REGIMEN, HIGH DOSE-CHEMOTHERAPY
  77. MELPHALAN [Suspect]
     Active Substance: MELPHALAN
     Indication: Hodgkin^s disease
     Dosage: PART OF BEAM REGIMEN, HIGH DOSE-CHEMOTHERAPY
  78. MELPHALAN [Suspect]
     Active Substance: MELPHALAN
     Dosage: PART OF BEAM REGIMEN, HIGH DOSE-CHEMOTHERAPY
     Route: 065
  79. MELPHALAN [Suspect]
     Active Substance: MELPHALAN
     Dosage: PART OF BEAM REGIMEN, HIGH DOSE-CHEMOTHERAPY
     Route: 065
  80. MELPHALAN [Suspect]
     Active Substance: MELPHALAN
     Dosage: PART OF BEAM REGIMEN, HIGH DOSE-CHEMOTHERAPY
  81. METHYLPREDNISOLONE [Suspect]
     Active Substance: METHYLPREDNISOLONE
     Indication: Myositis
     Dosage: UNK
  82. METHYLPREDNISOLONE [Suspect]
     Active Substance: METHYLPREDNISOLONE
     Dosage: UNK
     Route: 042
  83. METHYLPREDNISOLONE [Suspect]
     Active Substance: METHYLPREDNISOLONE
     Dosage: UNK
     Route: 042
  84. METHYLPREDNISOLONE [Suspect]
     Active Substance: METHYLPREDNISOLONE
     Dosage: UNK

REACTIONS (1)
  - Drug ineffective [Unknown]
